FAERS Safety Report 18303189 (Version 9)
Quarter: 2021Q2

REPORT INFORMATION
  Report Type: Report from Study
  Country: JP (occurrence: JP)
  Receive Date: 20200924
  Receipt Date: 20210406
  Transmission Date: 20210717
  Serious: Yes (Hospitalization, Other)
  Sender: FDA-Public Use
  Company Number: JP-TAKEDA-2020TJP019898

PATIENT
  Age: 79 Year
  Sex: Female
  Weight: 42.9 kg

DRUGS (31)
  1. REVLIMID [Suspect]
     Active Substance: LENALIDOMIDE
     Dosage: 15 MILLIGRAM, QD
     Route: 048
     Dates: start: 20181018
  2. REVLIMID [Suspect]
     Active Substance: LENALIDOMIDE
     Dosage: 20 MILLIGRAM, QD
     Route: 048
     Dates: start: 20181115
  3. REVLIMID [Suspect]
     Active Substance: LENALIDOMIDE
     Dosage: 10 MILLIGRAM, QD
     Route: 048
     Dates: start: 20190207
  4. REVLIMID [Suspect]
     Active Substance: LENALIDOMIDE
     Dosage: 5 MILLIGRAM, QD
     Route: 048
     Dates: start: 20190404
  5. IXAZOMIB [Suspect]
     Active Substance: IXAZOMIB
     Indication: PLASMA CELL MYELOMA
     Dosage: 2.3 MILLIGRAM, 1/WEEK
     Route: 048
     Dates: start: 20180823, end: 20181130
  6. REVLIMID [Suspect]
     Active Substance: LENALIDOMIDE
     Dosage: 10 MILLIGRAM, QD
     Route: 048
     Dates: start: 20190919
  7. REVLIMID [Suspect]
     Active Substance: LENALIDOMIDE
     Dosage: 5 MILLIGRAM, QD
     Route: 048
     Dates: start: 20201008
  8. LENADEX [Suspect]
     Active Substance: DEXAMETHASONE ACETATE
     Indication: PLASMA CELL MYELOMA
     Dosage: 20 MILLIGRAM, 1/WEEK
     Route: 048
     Dates: start: 20180823
  9. LENADEX [Suspect]
     Active Substance: DEXAMETHASONE ACETATE
     Dosage: 16 MILLIGRAM, 1/WEEK
     Route: 048
     Dates: start: 20190530
  10. BAKTAR [Concomitant]
     Active Substance: SULFAMETHOXAZOLE\TRIMETHOPRIM
     Indication: PROPHYLAXIS
     Dosage: 1 DOSAGE FORM, QD
     Route: 048
     Dates: start: 20180323
  11. DEPAS [Concomitant]
     Indication: INSOMNIA
     Dosage: 0.5 MILLIGRAM, QD
     Route: 048
     Dates: start: 20180413
  12. BAYASPIRIN [Concomitant]
     Active Substance: ASPIRIN
     Indication: PROPHYLAXIS
     Dosage: 100 MILLIGRAM, QD
     Route: 048
     Dates: start: 20180823
  13. IXAZOMIB [Suspect]
     Active Substance: IXAZOMIB
     Dosage: 4 MILLIGRAM, 1/WEEK
     Route: 048
     Dates: start: 20190308, end: 20200828
  14. EDIROL [Concomitant]
     Active Substance: ELDECALCITOL
     Indication: OSTEOPOROSIS
     Dosage: 0.75 MICROGRAM, QD
     Route: 048
     Dates: start: 20181018
  15. FOSAMAC [Concomitant]
     Active Substance: ALENDRONATE SODIUM
     Indication: OSTEOPOROSIS
     Dosage: 35 MILLIGRAM, 1/WEEK
     Route: 048
     Dates: start: 20181213
  16. IXAZOMIB [Suspect]
     Active Substance: IXAZOMIB
     Dosage: 2.3 MILLIGRAM, 1/WEEK
     Route: 048
     Dates: start: 20201008
  17. REVLIMID [Suspect]
     Active Substance: LENALIDOMIDE
     Dosage: 5 MILLIGRAM, QD
     Route: 048
     Dates: start: 20180920
  18. LENADEX [Suspect]
     Active Substance: DEXAMETHASONE ACETATE
     Dosage: 12 MILLIGRAM, 1/WEEK
     Route: 048
     Dates: start: 20190627
  19. ACICLOVIR [Concomitant]
     Active Substance: ACYCLOVIR
     Indication: PROPHYLAXIS
     Dosage: 200 MILLIGRAM, QD
     Route: 048
     Dates: start: 20181115
  20. IXAZOMIB [Suspect]
     Active Substance: IXAZOMIB
     Dosage: 3 MILLIGRAM, 1/WEEK
     Route: 048
     Dates: start: 20181214, end: 20190222
  21. REVLIMID [Suspect]
     Active Substance: LENALIDOMIDE
     Indication: PLASMA CELL MYELOMA
     Dosage: 25 MILLIGRAM, QD
     Route: 048
     Dates: start: 20180823
  22. LENADEX [Suspect]
     Active Substance: DEXAMETHASONE ACETATE
     Dosage: 4 MILLIGRAM, 1/WEEK
     Route: 048
     Dates: start: 20191114
  23. MAGMITT [Suspect]
     Active Substance: MAGNESIUM OXIDE
     Indication: CONSTIPATION
     Dosage: 660 MILLIGRAM, TID
     Route: 048
     Dates: start: 20180329
  24. OXYCONTIN [Concomitant]
     Active Substance: OXYCODONE HYDROCHLORIDE
     Dosage: 5 MILLIGRAM, BID
     Route: 048
     Dates: start: 20180425
  25. OLOPATADINE HYDROCHLORIDE. [Concomitant]
     Active Substance: OLOPATADINE HYDROCHLORIDE
     Indication: PROPHYLAXIS
     Dosage: 5 MILLIGRAM, BID
     Route: 048
     Dates: start: 20190919
  26. LANSOPRAZOLE. [Concomitant]
     Active Substance: LANSOPRAZOLE
     Indication: PROPHYLAXIS
     Dosage: 30 MILLIGRAM, QD
     Route: 048
     Dates: start: 20190207
  27. LENADEX [Suspect]
     Active Substance: DEXAMETHASONE ACETATE
     Dosage: 8 MILLIGRAM, 1/WEEK
     Route: 048
     Dates: start: 20190822
  28. CALONAL [Concomitant]
     Active Substance: ACETAMINOPHEN
     Dosage: 1 DOSAGE FORM, QID
     Route: 048
     Dates: start: 20180424
  29. FLUCONAZOLE. [Concomitant]
     Active Substance: FLUCONAZOLE
     Indication: PROPHYLAXIS
     Dosage: 100 MILLIGRAM, QD
     Route: 048
     Dates: start: 20200820
  30. MEVALOTIN [Concomitant]
     Active Substance: PRAVASTATIN SODIUM
     Indication: HYPERLIPIDAEMIA
     Dosage: 1 DOSAGE FORM, QD
     Route: 048
     Dates: start: 20180413
  31. PREDNISOLONE. [Concomitant]
     Active Substance: PREDNISOLONE
     Dosage: 5 MILLIGRAM, QD
     Route: 048
     Dates: start: 20200402

REACTIONS (8)
  - Gastroenteritis [Recovered/Resolved]
  - Rash [Recovered/Resolved]
  - Decreased appetite [Not Recovered/Not Resolved]
  - Fungal skin infection [Not Recovered/Not Resolved]
  - Back pain [Not Recovered/Not Resolved]
  - Diarrhoea [Recovered/Resolved]
  - Rash [Recovered/Resolved]
  - Dementia [Not Recovered/Not Resolved]

NARRATIVE: CASE EVENT DATE: 20180828
